FAERS Safety Report 4623281-8 (Version None)
Quarter: 2005Q1

REPORT INFORMATION
  Report Type: 
  Country: None (occurrence: None)
  Receive Date: 20050325
  Receipt Date: 20050313
  Transmission Date: 20050727
  Serious: Yes (Death)
  Sender: FDA-Public Use
  Company Number: 200510338BBE

PATIENT
  Age: 50 Year
  Sex: Male

DRUGS (2)
  1. PLASBUMIN-20 [Suspect]
     Dosage: INTRAVENOUS DRIP
     Route: 041
     Dates: start: 20050309
  2. ALBAPURE [Suspect]

REACTIONS (1)
  - CARDIAC ARREST [None]
